FAERS Safety Report 10156117 (Version 4)
Quarter: 2014Q2

REPORT INFORMATION
  Report Type: Spontaneous
  Country: DE (occurrence: DE)
  Receive Date: 20140506
  Receipt Date: 20140615
  Transmission Date: 20141212
  Serious: Yes (Life-Threatening, Hospitalization)
  Sender: FDA-Public Use
  Company Number: PHHY2014DE031419

PATIENT
  Sex: Female
  Weight: 70 kg

DRUGS (14)
  1. SANDIMMUN OPTORAL [Suspect]
     Indication: PSORIASIS
     Dosage: 75 MG, DAILY
     Route: 048
     Dates: start: 2010
  2. SANDIMMUN OPTORAL [Suspect]
     Indication: NEURODERMATITIS
     Dosage: 75 MG,DAILY
     Route: 048
     Dates: start: 20130619
  3. SANDIMMUN OPTORAL [Suspect]
     Dosage: UNK
     Route: 048
     Dates: start: 201401
  4. PRAMIPEXOL [Concomitant]
     Indication: RESTLESS LEGS SYNDROME
     Dosage: 0.18 MG, DAILY
     Route: 048
     Dates: start: 201310
  5. TORASEMID [Concomitant]
     Indication: OEDEMA
     Dosage: 10 MG, DAILY
     Route: 048
     Dates: start: 201309
  6. L THYROXIN [Concomitant]
     Indication: HYPOTHYROIDISM
     Dosage: 75 UG, DAILY (BEFORE 2010)
  7. SYMBICORT [Concomitant]
     Indication: ASTHMA
     Dosage: 320 /9 UG (BEFORE 2010)
     Route: 055
  8. IRBESARTAN [Concomitant]
     Indication: HYPERTENSION
     Dosage: 150/12.5 MG, ORAL DAILY
     Route: 048
     Dates: start: 201206
  9. PROGYNOVA [Concomitant]
     Indication: MENOPAUSE
     Dosage: 1 MG, DAILY (BEFORE 2010)
  10. PREDNISOLON [Concomitant]
     Dosage: 20 MG, UNK
     Route: 048
  11. ATARAX//HYDROXYZINE HYDROCHLORIDE [Concomitant]
     Dosage: 25 MG, UNK
     Route: 048
  12. CARVEDILOL [Concomitant]
     Dosage: 25 MG, UNK
     Route: 048
  13. LORMETAZEPAM [Concomitant]
     Indication: INSOMNIA
     Dosage: 1 MG, DAILY
     Route: 048
     Dates: start: 201310
  14. AERIUS [Concomitant]
     Indication: PRURITUS
     Dosage: 5 MG, DAILY
     Route: 048
     Dates: start: 201202

REACTIONS (5)
  - Social phobia [Not Recovered/Not Resolved]
  - Suicidal ideation [Not Recovered/Not Resolved]
  - Neurodermatitis [Not Recovered/Not Resolved]
  - Depression [Not Recovered/Not Resolved]
  - Wound [Unknown]
